FAERS Safety Report 9226114 (Version 2)
Quarter: 2013Q2

REPORT INFORMATION
  Report Type: Spontaneous
  Country: US (occurrence: US)
  Receive Date: 20130411
  Receipt Date: 20130520
  Transmission Date: 20140414
  Serious: No
  Sender: FDA-Public Use
  Company Number: US-009507513-1304USA005379

PATIENT
  Age: 73 Year
  Sex: Female
  Weight: 49.89 kg

DRUGS (5)
  1. CLARITIN-D 24 HOUR [Suspect]
     Indication: SINUS CONGESTION
     Dosage: 10 MG, ONCE
     Route: 048
     Dates: start: 201304
  2. CLARITIN-D 24 HOUR [Suspect]
     Indication: SNEEZING
  3. CLARITIN-D 24 HOUR [Suspect]
     Indication: COUGH
  4. CLARITIN-D 24 HOUR [Suspect]
     Indication: LACRIMATION INCREASED
  5. CLARITIN-D 24 HOUR [Suspect]
     Indication: MEDICAL OBSERVATION

REACTIONS (1)
  - Insomnia [Recovered/Resolved]
